FAERS Safety Report 5016799-X (Version None)
Quarter: 2006Q2

REPORT INFORMATION
  Report Type: 
  Country: None (occurrence: None)
  Receive Date: 20060602
  Receipt Date: 20060327
  Transmission Date: 20061013
  Serious: No
  Sender: FDA-Public Use
  Company Number: US-GLAXOSMITHKLINE-A0599141A

PATIENT
  Age: 72 Year
  Sex: Male

DRUGS (4)
  1. AUGMENTIN XR [Suspect]
     Indication: SKIN INFECTION
     Dosage: 2TAB TWICE PER DAY
     Route: 048
     Dates: start: 20050201
  2. HYDROCHLOROTHIAZIDE [Concomitant]
  3. AVANDIA [Concomitant]
  4. ZOCOR [Concomitant]

REACTIONS (2)
  - PRURITUS [None]
  - URTICARIA [None]
